FAERS Safety Report 20686474 (Version 2)
Quarter: 2022Q2

REPORT INFORMATION
  Report Type: Report from Study
  Country: US (occurrence: US)
  Receive Date: 20220407
  Receipt Date: 20220418
  Transmission Date: 20220721
  Serious: Yes (Hospitalization, Other)
  Sender: FDA-Public Use
  Company Number: US-JAZZ-2022-US-010064

PATIENT
  Age: 35 Year
  Sex: Female

DRUGS (8)
  1. XYREM [Suspect]
     Active Substance: SODIUM OXYBATE
     Indication: Narcolepsy
     Dosage: 2.25 GRAM, BID
     Route: 048
     Dates: start: 201301, end: 201302
  2. XYREM [Suspect]
     Active Substance: SODIUM OXYBATE
     Indication: Cataplexy
     Dosage: DOSE ADJUSTMENT
     Route: 048
     Dates: start: 201302, end: 201510
  3. XYREM [Suspect]
     Active Substance: SODIUM OXYBATE
     Indication: Somnolence
     Dosage: 3 GRAM, BID
     Route: 048
     Dates: start: 201510
  4. ALCOHOL [Concomitant]
     Active Substance: ALCOHOL
     Indication: Product used for unknown indication
     Dosage: UNK
     Dates: start: 20150918
  5. OXYCODONE HYDROCHLORIDE [Concomitant]
     Active Substance: OXYCODONE HYDROCHLORIDE
     Indication: Product used for unknown indication
     Dosage: UNK
     Dates: start: 20220328
  6. IBUPROFEN 2CARE4 [Concomitant]
     Indication: Product used for unknown indication
     Dosage: CAPLET
     Dates: start: 20220328
  7. TYLENOL EXTRA STRENGTH [Concomitant]
     Active Substance: ACETAMINOPHEN
     Indication: Product used for unknown indication
     Dosage: CAPLET
     Dates: start: 20220328
  8. LYRICA [Concomitant]
     Active Substance: PREGABALIN
     Indication: Restless legs syndrome

REACTIONS (9)
  - Pneumonia [Unknown]
  - Suicidal ideation [Unknown]
  - Bipolar disorder [Unknown]
  - Surgery [Unknown]
  - Cough [Unknown]
  - Pain [Unknown]
  - Fibromyalgia [Unknown]
  - Depression [Unknown]
  - Swelling [Unknown]

NARRATIVE: CASE EVENT DATE: 20150918
